FAERS Safety Report 17841544 (Version 2)
Quarter: 2020Q2

REPORT INFORMATION
  Report Type: Report from Study
  Country: DE (occurrence: DE)
  Receive Date: 20200529
  Receipt Date: 20200625
  Transmission Date: 20200714
  Serious: Yes (Hospitalization)
  Sender: FDA-Public Use
  Company Number: DE-BIOGEN-2014BI114495

PATIENT
  Sex: Female
  Weight: 113 kg

DRUGS (2)
  1. TECFIDERA [Suspect]
     Active Substance: DIMETHYL FUMARATE
     Route: 048
     Dates: start: 20140430, end: 201410
  2. TECFIDERA [Suspect]
     Active Substance: DIMETHYL FUMARATE
     Indication: MULTIPLE SCLEROSIS
     Route: 048
     Dates: start: 20140429, end: 20140917

REACTIONS (3)
  - Foetal heart rate abnormal [Unknown]
  - Delayed delivery [Unknown]
  - Maternal exposure during pregnancy [Recovered/Resolved]
